FAERS Safety Report 8041960-X (Version None)
Quarter: 2012Q1

REPORT INFORMATION
  Report Type: 
  Country: None (occurrence: None)
  Receive Date: 20120112
  Receipt Date: 20120106
  Transmission Date: 20120608
  Serious: Yes (Hospitalization)
  Sender: FDA-Public Use
  Company Number: PHEH2012US000913

PATIENT
  Sex: Male

DRUGS (4)
  1. WARFARIN SODIUM [Concomitant]
  2. AFINITOR [Suspect]
     Dosage: 10 MG, QD
     Route: 048
  3. SANDOSTATIN LAR [Concomitant]
     Dosage: 20 MG, UNK
  4. LISINOPRIL AND HYDROCHLOROTHIAZIDE [Concomitant]

REACTIONS (4)
  - PYREXIA [None]
  - CONVULSION [None]
  - CYST [None]
  - INFECTION [None]
